FAERS Safety Report 4368850-8 (Version None)
Quarter: 2004Q2

REPORT INFORMATION
  Report Type: 
  Country: None (occurrence: None)
  Receive Date: 20040601
  Receipt Date: 20040601
  Transmission Date: 20050107
  Serious: Yes (Hospitalization)
  Sender: FDA-Public Use
  Company Number: None

PATIENT
  Sex: Female
  Weight: 53.5244 kg

DRUGS (1)
  1. PROCRIT 60,000 [Suspect]
     Dosage: WEEKLY
     Dates: start: 20040330

REACTIONS (1)
  - BREAST CANCER [None]
